FAERS Safety Report 7270867-0 (Version None)
Quarter: 2011Q1

REPORT INFORMATION
  Report Type: 
  Country: None (occurrence: None)
  Receive Date: 20110202
  Receipt Date: 20110118
  Transmission Date: 20110831
  Serious: Yes (Other)
  Sender: FDA-Public Use
  Company Number: PHHY2010NL90281

PATIENT
  Age: 28 Year
  Sex: Male

DRUGS (3)
  1. PREDNISONE [Suspect]
     Dosage: 1 MG/KG, UNK
  2. PREDNISONE [Suspect]
     Dosage: 30 MG, QD
  3. AZATHIOPRINE [Suspect]
     Indication: ACUTE FEBRILE NEUTROPHILIC DERMATOSIS
     Dosage: 50 MG, BID

REACTIONS (1)
  - BONE MARROW FAILURE [None]
